FAERS Safety Report 15317433 (Version 1)
Quarter: 2018Q3

REPORT INFORMATION
  Report Type: Spontaneous
  Country: US (occurrence: US)
  Receive Date: 20180824
  Receipt Date: 20180824
  Transmission Date: 20181010
  Serious: Yes (Death, Other)
  Sender: FDA-Public Use
  Company Number: US-GUERBET-US-20180209

PATIENT
  Age: 34 Week
  Sex: Female

DRUGS (2)
  1. LIPIODOL [Suspect]
     Active Substance: ETHIODIZED OIL
     Indication: LYMPHANGIOGRAM
     Dosage: DAY OF LIFE 43
     Route: 027
  2. OPTIRAY 350 [Suspect]
     Active Substance: IOVERSOL
     Indication: CATHETERISATION CARDIAC
     Dosage: TWO CARDIAC CATHETERISATIONS PERFORMED WITH OPTIRAY 350 ON DAY OF LIFE 31 AND 41, WITH A TOTAL OF 12
     Route: 065

REACTIONS (3)
  - Primary hypothyroidism [Recovered/Resolved]
  - Death [Fatal]
  - Overdose [Recovered/Resolved]
